FAERS Safety Report 4632812-3 (Version None)
Quarter: 2005Q2

REPORT INFORMATION
  Report Type: 
  Country: None (occurrence: None)
  Receive Date: 20050412
  Receipt Date: 20050405
  Transmission Date: 20051028
  Serious: Yes (Hospitalization)
  Sender: FDA-Public Use
  Company Number: 200511219FR

PATIENT
  Age: 70 Year
  Sex: Female

DRUGS (1)
  1. BIRODOGYL [Suspect]
     Route: 048
     Dates: start: 20050308, end: 20050310

REACTIONS (3)
  - DERMATITIS EXFOLIATIVE [None]
  - PURPURA [None]
  - URTICARIA [None]
